FAERS Safety Report 5914483-9 (Version None)
Quarter: 2008Q4

REPORT INFORMATION
  Report Type: 
  Country: None (occurrence: None)
  Receive Date: 20081008
  Receipt Date: 20080923
  Transmission Date: 20090506
  Serious: Yes (Hospitalization)
  Sender: FDA-Public Use
  Company Number: 013967

PATIENT
  Age: 40 Year
  Sex: Female
  Weight: 66 kg

DRUGS (10)
  1. PRIALT [Suspect]
     Indication: PAIN
     Dosage: 0.425 UG, ONCE/HOUR, INTRATHECAL; ONCE/HOUR, INTRATHECAL
     Route: 037
     Dates: start: 20080616, end: 20080911
  2. PRIALT [Suspect]
     Indication: PAIN
     Dosage: 0.425 UG, ONCE/HOUR, INTRATHECAL; ONCE/HOUR, INTRATHECAL
     Route: 037
     Dates: start: 20080911, end: 20080914
  3. CYCLIMORPH(CYCLIZINE TARTRATE, MORPHINE TARTRATE) [Suspect]
     Indication: PAIN
     Dosage: SINGLE, INTRAMUSCULAR
     Route: 030
     Dates: start: 20080616, end: 20080911
  4. ETORICOXIB (ETORICOXIB) [Concomitant]
  5. AMITRIPTYLINE HYDROCHLORIDE [Concomitant]
  6. BACLOFEN [Concomitant]
  7. LANSOPRAZOLE [Concomitant]
  8. CYCLIZINE [Concomitant]
  9. FUSIDIC ACID [Concomitant]
  10. MINOCYCLINE HCL [Concomitant]

REACTIONS (3)
  - CONVULSION [None]
  - MALAISE [None]
  - PAIN [None]
